FAERS Safety Report 5011589-6 (Version None)
Quarter: 2006Q2

REPORT INFORMATION
  Report Type: 
  Country: None (occurrence: None)
  Receive Date: 20060524
  Receipt Date: 20060512
  Transmission Date: 20061013
  Serious: Yes (Death)
  Sender: FDA-Public Use
  Company Number: 145761USA

PATIENT
  Age: 50 Year
  Sex: Male

DRUGS (2)
  1. PAROXETINE HCL [Suspect]
     Indication: PANIC DISORDER
     Dosage: 10 MILLIGRAM
     Dates: start: 20060101
  2. AMBIEN [Suspect]
     Dosage: 5 MILLIGRAM

REACTIONS (3)
  - COMPLETED SUICIDE [None]
  - MEDICATION ERROR [None]
  - PANIC DISORDER [None]
